FAERS Safety Report 9126826 (Version 1)
Quarter: 2013Q1

REPORT INFORMATION
  Report Type: Spontaneous
  Country: JP (occurrence: JP)
  Receive Date: 20130122
  Receipt Date: 20130122
  Transmission Date: 20140127
  Serious: Yes (Hospitalization, Other)
  Sender: FDA-Public Use
  Company Number: JP-WATSON-2013-00192

PATIENT
  Age: 51 Year
  Sex: Female

DRUGS (2)
  1. TACROLIMUS (UNKNOWN) [Suspect]
     Indication: DERMATOMYOSITIS
     Dosage: 3 MG, DAILY
     Route: 065
  2. PREDNISOLONE (UNKNOWN) [Suspect]
     Indication: DERMATOMYOSITIS
     Dosage: MAXIMUM DOSE: 50 MG/DAY, TITRATED DOWN TO 22.5 MG/DAY
     Route: 065

REACTIONS (4)
  - Scleroderma renal crisis [Recovering/Resolving]
  - Thrombocytopenia [Recovering/Resolving]
  - Haemolytic anaemia [Recovering/Resolving]
  - Posterior reversible encephalopathy syndrome [Recovering/Resolving]
